FAERS Safety Report 18170045 (Version 1)
Quarter: 2020Q3

REPORT INFORMATION
  Report Type: Spontaneous
  Country: US (occurrence: US)
  Receive Date: 20200819
  Receipt Date: 20200819
  Transmission Date: 20201103
  Serious: Yes (Hospitalization)
  Sender: FDA-Public Use
  Company Number: US-SHIRE-US202026406

PATIENT
  Age: 78 Year
  Sex: Male
  Weight: .24 kg

DRUGS (4)
  1. GATTEX [Suspect]
     Active Substance: TEDUGLUTIDE\WATER
     Indication: PRODUCT USED FOR UNKNOWN INDICATION
     Dosage: 0.240 UNIT DOSE, 1X/DAY:QD
     Route: 065
     Dates: start: 20180416
  2. GATTEX [Suspect]
     Active Substance: TEDUGLUTIDE\WATER
     Indication: PRODUCT USED FOR UNKNOWN INDICATION
     Dosage: 0.240 UNIT DOSE, 1X/DAY:QD
     Route: 065
     Dates: start: 20180416
  3. GATTEX [Suspect]
     Active Substance: TEDUGLUTIDE\WATER
     Indication: PRODUCT USED FOR UNKNOWN INDICATION
     Dosage: 0.240 UNIT DOSE, 1X/DAY:QD
     Route: 065
     Dates: start: 20180416
  4. GATTEX [Suspect]
     Active Substance: TEDUGLUTIDE\WATER
     Indication: PRODUCT USED FOR UNKNOWN INDICATION
     Dosage: 0.240 UNIT DOSE, 1X/DAY:QD
     Route: 065
     Dates: start: 20180416

REACTIONS (5)
  - Fall [Recovering/Resolving]
  - Nasal congestion [Recovering/Resolving]
  - Weight decreased [Recovering/Resolving]
  - Joint injury [Recovering/Resolving]
  - Coronavirus test positive [Recovering/Resolving]

NARRATIVE: CASE EVENT DATE: 20200710
